FAERS Safety Report 14355295 (Version 1)
Quarter: 2018Q1

REPORT INFORMATION
  Report Type: Spontaneous
  Country: US (occurrence: US)
  Receive Date: 20180104
  Receipt Date: 20180104
  Transmission Date: 20180509
  Serious: Yes (Other)
  Sender: FDA-Public Use
  Company Number: None

PATIENT
  Age: 35 Year
  Sex: Female
  Weight: 71.55 kg

DRUGS (1)
  1. NEXPLANON [Suspect]
     Active Substance: ETONOGESTREL
     Indication: CONTRACEPTION
     Dosage: OTHER FREQUENCY:3 YEARS;?
     Route: 023

REACTIONS (2)
  - Pregnancy with implant contraceptive [None]
  - Pregnancy [None]

NARRATIVE: CASE EVENT DATE: 20180103
